FAERS Safety Report 5901052-X (Version None)
Quarter: 2008Q3

REPORT INFORMATION
  Report Type: 
  Country: None (occurrence: None)
  Receive Date: 20080929
  Receipt Date: 20021206
  Transmission Date: 20090109
  Serious: No
  Sender: FDA-Public Use
  Company Number: PR-BAYER-200226642BWH

PATIENT
  Age: 68 Year
  Sex: Male

DRUGS (2)
  1. AVELOX [Suspect]
     Indication: PNEUMONIA
     Route: 042
  2. STEROIDS (NOS) [Concomitant]
     Route: 065

REACTIONS (3)
  - AGITATION [None]
  - ANXIETY [None]
  - DISORIENTATION [None]
